FAERS Safety Report 7443592-0 (Version None)
Quarter: 2011Q2

REPORT INFORMATION
  Report Type: 
  Country: None (occurrence: None)
  Receive Date: 20110419
  Receipt Date: 20110411
  Transmission Date: 20111010
  Serious: Yes (Hospitalization)
  Sender: FDA-Public Use
  Company Number: ABR_00034_2011

PATIENT
  Sex: Female

DRUGS (1)
  1. NITROGLYCERIN SPRAY [Suspect]
     Indication: ANGINA PECTORIS
     Dosage: (0.4 MG MILLIGRAM (S))

REACTIONS (5)
  - ABASIA [None]
  - MIGRAINE [None]
  - VOMITING [None]
  - POISONING [None]
  - MALAISE [None]
